FAERS Safety Report 18352015 (Version 3)
Quarter: 2020Q4

REPORT INFORMATION
  Report Type: Spontaneous
  Country: CN (occurrence: CN)
  Receive Date: 20201006
  Receipt Date: 20201015
  Transmission Date: 20210114
  Serious: Yes (Other)
  Sender: FDA-Public Use
  Company Number: CN-BAUSCH-BL-2020-028465

PATIENT
  Age: 71 Year
  Sex: Female

DRUGS (4)
  1. ASPIRIN. [Concomitant]
     Active Substance: ASPIRIN
     Indication: RHEUMATOID ARTHRITIS
     Dosage: DAILY
  2. SUCCINIC METOPROLOL [Concomitant]
     Indication: RHEUMATOID ARTHRITIS
     Dosage: DAILY
  3. DEXAMETHASONE. [Suspect]
     Active Substance: DEXAMETHASONE
     Indication: RHEUMATOID ARTHRITIS
     Dosage: DAILY AT A DOSE OF 0.75 TO 3MG
     Route: 065
  4. IRBESARTAN. [Concomitant]
     Active Substance: IRBESARTAN
     Indication: RHEUMATOID ARTHRITIS
     Dosage: DAILY

REACTIONS (2)
  - Drug abuse [Unknown]
  - Bacterial infection [Recovered/Resolved]
